FAERS Safety Report 5707672-X (Version None)
Quarter: 2008Q2

REPORT INFORMATION
  Report Type: 
  Country: None (occurrence: None)
  Receive Date: 20080416
  Receipt Date: 20080405
  Transmission Date: 20081010
  Serious: Yes (Other)
  Sender: FDA-Public Use
  Company Number: US-PFIZER INC-2008030758

PATIENT
  Sex: Female
  Weight: 51.7 kg

DRUGS (6)
  1. CHANTIX [Suspect]
     Indication: SMOKING CESSATION THERAPY
     Dates: start: 20071207, end: 20071221
  2. XANAX [Concomitant]
  3. VICODIN [Concomitant]
     Indication: BACK PAIN
  4. ALL OTHER THERAPEUTIC PRODUCTS [Concomitant]
     Indication: DEPRESSION
  5. ZANTAC [Concomitant]
  6. TRAZODONE HCL [Concomitant]
     Indication: BACK PAIN

REACTIONS (4)
  - DIZZINESS [None]
  - EAR OPERATION [None]
  - HEADACHE [None]
  - WRONG TECHNIQUE IN DRUG USAGE PROCESS [None]
